FAERS Safety Report 8786638 (Version 1)
Quarter: 2012Q4

REPORT INFORMATION
  Report Type: Report from Study
  Country: US (occurrence: US)
  Receive Date: 20120914
  Receipt Date: 20120914
  Transmission Date: 20130627
  Serious: No
  Sender: FDA-Public Use
  Company Number: US-VERTEX PHARMACEUTICAL INC.-AE-2012-008822

PATIENT
  Age: 58 Year
  Sex: Male
  Weight: 100.91 kg

DRUGS (11)
  1. INCIVEK [Suspect]
     Indication: HEPATITIS C
     Route: 048
     Dates: start: 20120428, end: 201207
  2. PEGASYS [Concomitant]
     Indication: HEPATITIS C
     Route: 058
     Dates: start: 20120428
  3. RIBASPHERE [Concomitant]
     Indication: HEPATITIS C
     Route: 048
     Dates: start: 20120428
  4. CENTRUM SILVER ULTRA MEN^S [Concomitant]
     Route: 048
  5. LOVAZA [Concomitant]
     Route: 048
  6. BENZONATATE [Concomitant]
     Route: 048
  7. WHELCOL [Concomitant]
     Route: 048
  8. EQL SAW PALMETTO [Concomitant]
     Route: 048
  9. FLAX SEED OIL [Concomitant]
     Route: 048
  10. FISH OIL [Concomitant]
     Route: 048
  11. TRIBENZOR [Concomitant]
     Route: 048

REACTIONS (3)
  - Acne [Unknown]
  - Rash [Unknown]
  - Pruritus generalised [Unknown]
